FAERS Safety Report 5274400-4 (Version None)
Quarter: 2007Q1

REPORT INFORMATION
  Report Type: 
  Country: None (occurrence: None)
  Receive Date: 20070323
  Receipt Date: 20070313
  Transmission Date: 20070707
  Serious: Yes (Disabling, Other)
  Sender: FDA-Public Use
  Company Number: FR-PFIZER INC-2007014459

PATIENT
  Sex: Male
  Weight: 65 kg

DRUGS (2)
  1. TAHOR [Suspect]
     Indication: BLOOD CHOLESTEROL
     Route: 048
     Dates: start: 20031001, end: 20070304
  2. TAHOR [Suspect]
     Indication: HYPERCHOLESTEROLAEMIA

REACTIONS (5)
  - DISCOMFORT [None]
  - ERECTILE DYSFUNCTION [None]
  - MUSCLE STRAIN [None]
  - MYALGIA [None]
  - OEDEMA [None]
